FAERS Safety Report 23626431 (Version 2)
Quarter: 2024Q2

REPORT INFORMATION
  Report Type: Spontaneous
  Country: CO (occurrence: CO)
  Receive Date: 20240313
  Receipt Date: 20240405
  Transmission Date: 20240716
  Serious: No
  Sender: FDA-Public Use
  Company Number: CO-PFIZER INC-PV202400023363

PATIENT
  Age: 16 Year
  Sex: Male

DRUGS (1)
  1. GENOTROPIN [Suspect]
     Active Substance: SOMATROPIN
     Dosage: UNK
     Dates: start: 20231210, end: 20240114

REACTIONS (1)
  - Wrong technique in device usage process [Unknown]

NARRATIVE: CASE EVENT DATE: 20231210
